FAERS Safety Report 4341855-9 (Version None)
Quarter: 2004Q2

REPORT INFORMATION
  Report Type: 
  Country: None (occurrence: None)
  Receive Date: 20040415
  Receipt Date: 20040329
  Transmission Date: 20050107
  Serious: Yes (Hospitalization)
  Sender: FDA-Public Use
  Company Number: JP_040302889

PATIENT
  Age: 67 Year
  Sex: Male
  Weight: 38 kg

DRUGS (4)
  1. GEMZAR [Suspect]
     Indication: NON-SMALL CELL LUNG CANCER
     Dosage: 1200 MG OTHER
     Dates: start: 20010328, end: 20011201
  2. LOXONIN (LOXOPROFEN SODIUM) [Concomitant]
  3. METHYLCOBAL          (MECOBALAMIN) [Concomitant]
  4. MUCOSTA (REBAMIPIDE) [Concomitant]

REACTIONS (6)
  - LUNG ADENOCARCINOMA [None]
  - MALIGNANT NEOPLASM PROGRESSION [None]
  - NEOPLASM GROWTH ACCELERATED [None]
  - OESOPHAGEAL STENOSIS [None]
  - PAROTITIS [None]
  - WHITE BLOOD CELL COUNT INCREASED [None]
